FAERS Safety Report 4331599-1 (Version None)
Quarter: 2004Q2

REPORT INFORMATION
  Report Type: 
  Country: None (occurrence: None)
  Receive Date: 20040402
  Receipt Date: 20030617
  Transmission Date: 20050107
  Serious: Yes (Hospitalization, Disabling)
  Sender: FDA-Public Use
  Company Number: US-MERCK-0306USA02099

PATIENT
  Age: 44 Year
  Sex: Female
  Weight: 91 kg

DRUGS (8)
  1. ZOLOFT [Concomitant]
     Route: 065
  2. ULTRAM [Concomitant]
     Route: 065
     Dates: start: 19990101, end: 20010101
  3. DIOVAN [Concomitant]
     Indication: HYPERTENSION
     Route: 065
     Dates: start: 19980101, end: 20010101
  4. PROZAC [Concomitant]
     Route: 065
  5. OXYCODONE [Concomitant]
     Route: 065
     Dates: start: 19990101, end: 20010101
  6. ZANTAC [Concomitant]
     Route: 065
     Dates: start: 19920101
  7. MAXALT [Concomitant]
     Route: 048
     Dates: start: 20000201
  8. VIOXX [Suspect]
     Indication: SCIATIC NERVE INJURY
     Route: 048
     Dates: start: 20000406, end: 20010601

REACTIONS (54)
  - ACUTE CORONARY SYNDROME [None]
  - ACUTE MYOCARDIAL INFARCTION [None]
  - ACUTE RESPIRATORY FAILURE [None]
  - AGITATION [None]
  - ANGINA PECTORIS [None]
  - AORTIC VALVE CALCIFICATION [None]
  - ARTERIAL DISORDER [None]
  - ARTHRALGIA [None]
  - ASTHENIA [None]
  - ATELECTASIS [None]
  - ATRIAL TACHYCARDIA [None]
  - BACK PAIN [None]
  - BLOOD PRESSURE DECREASED [None]
  - BRAIN HYPOXIA [None]
  - CARDIAC ARREST [None]
  - CARDIAC FAILURE CONGESTIVE [None]
  - CARDIOGENIC SHOCK [None]
  - CEREBROVASCULAR ACCIDENT [None]
  - CORONARY ARTERY DISEASE [None]
  - DILATATION ATRIAL [None]
  - DILATATION VENTRICULAR [None]
  - ELECTROCARDIOGRAM QRS COMPLEX PROLONGED [None]
  - EMOTIONAL DISTRESS [None]
  - ENCEPHALOPATHY [None]
  - FATIGUE [None]
  - FOLLICULITIS [None]
  - GASTROOESOPHAGEAL REFLUX DISEASE [None]
  - HEADACHE [None]
  - HYPERCHOLESTEROLAEMIA [None]
  - HYPOKINESIA [None]
  - INTERVERTEBRAL DISC PROTRUSION [None]
  - ISCHAEMIC CARDIOMYOPATHY [None]
  - ISCHAEMIC HEPATITIS [None]
  - LOSS OF CONSCIOUSNESS [None]
  - LUNG INFILTRATION [None]
  - MENTAL STATUS CHANGES [None]
  - MIGRAINE [None]
  - MITRAL VALVE DISEASE [None]
  - MULTI-ORGAN FAILURE [None]
  - MULTIPLE SCLEROSIS [None]
  - MUSCLE CRAMP [None]
  - OEDEMA PERIPHERAL [None]
  - PANIC DISORDER [None]
  - PULMONARY OEDEMA [None]
  - PULSE ABNORMAL [None]
  - RENAL FAILURE ACUTE [None]
  - TENDONITIS [None]
  - THYROID NEOPLASM [None]
  - ULCER HAEMORRHAGE [None]
  - URINARY TRACT INFECTION [None]
  - VENTRICULAR DYSFUNCTION [None]
  - VENTRICULAR FIBRILLATION [None]
  - VENTRICULAR TACHYCARDIA [None]
  - VISUAL DISTURBANCE [None]
